FAERS Safety Report 8556547 (Version 2)
Quarter: 2013Q1

REPORT INFORMATION
  Report Type: Spontaneous
  Country: US (occurrence: None)
  Receive Date: 20120504
  Receipt Date: 20121031
  Transmission Date: 20140127
  Serious: Yes (Hospitalization)
  Sender: FDA-Public Use
  Company Number: DSA_48922_2012

PATIENT
  Sex: Female
  Weight: 55.79 kg

DRUGS (18)
  1. XENAZINE [Suspect]
     Indication: DYSKINESIA
     Dosage: (25 MG BID ORAL)
     Route: 048
     Dates: start: 201104
  2. XENAZINE [Suspect]
     Indication: TARDIVE DYSKINESIA
     Dosage: (25 MG BID ORAL)
     Route: 048
     Dates: start: 201104
  3. XENAZINE [Suspect]
     Indication: TORTICOLLIS
     Dosage: (25 MG BID ORAL)
     Route: 048
     Dates: start: 201104
  4. MS CONTIN [Suspect]
     Indication: PAIN
     Dosage: (DF), (DF)
  5. BOTOX [Suspect]
     Indication: MOVEMENT DISORDER
     Dosage: 65 UNITS FREQUENCY UNKNOWN
     Dates: start: 201110
  6. KLONOPIN [Concomitant]
  7. DILANTIN /00017401/ [Concomitant]
  8. KEPPRA [Concomitant]
  9. COGENTIN [Concomitant]
  10. COLACE [Concomitant]
  11. IRON SUPPLEMENT WITH VIT C + HERBS [Concomitant]
  12. PREMARIN [Concomitant]
  13. OXYCONTIN [Concomitant]
  14. NORVASC [Concomitant]
  15. ZESTRIL [Concomitant]
  16. PRILOSEC /00661201/ [Concomitant]
  17. TRAZODONE HYDROCHLORIDE [Concomitant]
  18. REMERON [Concomitant]

REACTIONS (11)
  - Crying [None]
  - Syncope [None]
  - Fall [None]
  - Cognitive disorder [None]
  - Dysphagia [None]
  - Head injury [None]
  - Blood pressure decreased [None]
  - Depression [None]
  - Oropharyngeal pain [None]
  - Back pain [None]
  - Insomnia [None]
